FAERS Safety Report 9006775 (Version 1)
Quarter: 2013Q1

REPORT INFORMATION
  Report Type: Spontaneous
  Country: US (occurrence: US)
  Receive Date: 20130110
  Receipt Date: 20130110
  Transmission Date: 20140127
  Serious: Yes (Other)
  Sender: FDA-Public Use
  Company Number: US-SANOFI-AVENTIS-2013SA001503

PATIENT
  Age: 49 Year
  Sex: Male
  Weight: 74.84 kg

DRUGS (2)
  1. AMBIEN [Suspect]
     Indication: SLEEP DISORDER
     Route: 048
  2. VALIUM [Suspect]
     Indication: NERVOUSNESS

REACTIONS (3)
  - Fall [Unknown]
  - Fractured coccyx [Unknown]
  - Pain [Unknown]
